FAERS Safety Report 16908836 (Version 1)
Quarter: 2019Q4

REPORT INFORMATION
  Report Type: Spontaneous
  Country: FR (occurrence: FR)
  Receive Date: 20191011
  Receipt Date: 20191011
  Transmission Date: 20200122
  Serious: Yes (Hospitalization)
  Sender: FDA-Public Use
  Company Number: FR-ROCHE-2432425

PATIENT
  Age: 54 Year
  Sex: Male
  Weight: 100 kg

DRUGS (10)
  1. ACTISKENAN [Suspect]
     Active Substance: MORPHINE SULFATE
     Indication: BACK PAIN
     Dosage: MOST RECENT DOSE ON 08/SEP/2019.
     Route: 048
     Dates: start: 20190805
  2. CORTANCYL [Concomitant]
     Active Substance: PREDNISONE
     Indication: BACK PAIN
     Route: 048
     Dates: end: 20190906
  3. RIVOTRIL [Suspect]
     Active Substance: CLONAZEPAM
     Indication: NEURALGIA
     Dosage: MOST RECENT DOSE ON 08/SEP/2019.
     Route: 048
     Dates: start: 20190821
  4. BUDESONIDE;FORMOTEROL FUMARATE [Concomitant]
     Active Substance: BUDESONIDE\FORMOTEROL FUMARATE
     Indication: DYSPNOEA
     Dosage: 1-0-1?400/12 MICROGRAMMES/DOSE
     Route: 055
     Dates: end: 20190906
  5. VENTOLINE [SALBUTAMOL] [Concomitant]
     Active Substance: ALBUTEROL SULFATE
     Indication: DYSPNOEA
     Route: 055
     Dates: end: 20190908
  6. STELARA [Suspect]
     Active Substance: USTEKINUMAB
     Indication: PSORIASIS
     Dosage: MOST RECENT DOSE ON 19/JUL/2019.
     Route: 048
     Dates: start: 20171110
  7. MORPHINE SULFATE. [Suspect]
     Active Substance: MORPHINE SULFATE
     Indication: BACK PAIN
     Dosage: 1-0-1?MOST RECENT DOSE ON 08/SEP/2019.
     Route: 048
     Dates: start: 20190805
  8. LOVENOX [Suspect]
     Active Substance: ENOXAPARIN SODIUM
     Indication: THROMBOSIS PROPHYLAXIS
     Dosage: 1-0-0
     Route: 058
     Dates: start: 20190906
  9. GABAPENTINE ARROW [Suspect]
     Active Substance: GABAPENTIN
     Indication: NEURALGIA
     Dosage: 1-1-2?MOST RECENT DOSE ON 08/SEP/2019.
     Route: 048
     Dates: start: 20190821
  10. PANTOPRAZOLE SODIUM. [Concomitant]
     Active Substance: PANTOPRAZOLE SODIUM
     Indication: PEPTIC ULCER
     Route: 048
     Dates: end: 20190908

REACTIONS (2)
  - Bronchospasm [Recovered/Resolved]
  - Respiratory distress [Recovered/Resolved]

NARRATIVE: CASE EVENT DATE: 20190908
